FAERS Safety Report 7779408-2 (Version None)
Quarter: 2011Q3

REPORT INFORMATION
  Report Type: 
  Country: None (occurrence: None)
  Receive Date: 20110927
  Receipt Date: 20110916
  Transmission Date: 20111222
  Serious: Yes (Hospitalization)
  Sender: FDA-Public Use
  Company Number: US-BIOGENIDEC-2011BI035784

PATIENT
  Age: 59 Year
  Sex: Female

DRUGS (4)
  1. AVONEX [Suspect]
     Route: 030
     Dates: start: 20091102
  2. TYLENOL-500 [Concomitant]
     Indication: PREMEDICATION
     Dates: start: 20091101
  3. AVONEX [Suspect]
     Route: 030
  4. AVONEX [Suspect]
     Indication: MULTIPLE SCLEROSIS
     Route: 030
     Dates: end: 20110501

REACTIONS (6)
  - PARAESTHESIA [None]
  - INFLUENZA LIKE ILLNESS [None]
  - JOINT STIFFNESS [None]
  - TRIGEMINAL NEURALGIA [None]
  - MULTIPLE SCLEROSIS RELAPSE [None]
  - VOMITING [None]
